FAERS Safety Report 10611553 (Version 1)
Quarter: 2014Q4

REPORT INFORMATION
  Report Type: Spontaneous
  Country: DE (occurrence: None)
  Receive Date: 20141124
  Receipt Date: 20141124
  Transmission Date: 20150529
  Serious: Yes (Death)
  Sender: FDA-Public Use
  Company Number: FK201403637

PATIENT
  Age: 27 Year
  Sex: Female
  Weight: 65 kg

DRUGS (6)
  1. KETANEST (KETAMINE HYDROCHLORIDE) [Concomitant]
  2. MIDAZOLAM [Concomitant]
     Active Substance: MIDAZOLAM\MIDAZOLAM HYDROCHLORIDE
  3. PROPOFOL. [Suspect]
     Active Substance: PROPOFOL
     Indication: SEDATIVE THERAPY
     Dosage: MAX. MG/KG/H
     Route: 042
     Dates: start: 20140827, end: 20140901
  4. SUFENTA [Concomitant]
     Active Substance: SUFENTANIL CITRATE
  5. CEFTRIAXONE. [Concomitant]
     Active Substance: CEFTRIAXONE
  6. KLACID (CLARITHROMYCIN) [Concomitant]
     Active Substance: CLARITHROMYCIN

REACTIONS (10)
  - Circulatory collapse [None]
  - Lactic acidosis [None]
  - Pneumonia [None]
  - Propofol infusion syndrome [None]
  - Cardiac pacemaker insertion [None]
  - Bradycardia [None]
  - Hyperkalaemia [None]
  - Continuous haemodiafiltration [None]
  - Multi-organ failure [None]
  - Blood creatine phosphokinase increased [None]

NARRATIVE: CASE EVENT DATE: 20140901
